FAERS Safety Report 17228861 (Version 1)
Quarter: 2020Q1

REPORT INFORMATION
  Report Type: Spontaneous
  Country: US (occurrence: US)
  Receive Date: 20200102
  Receipt Date: 20200102
  Transmission Date: 20200409
  Serious: Yes (Life-Threatening, Disabling)
  Sender: FDA-Public Use
  Company Number: None

PATIENT
  Age: 69 Year
  Sex: Male
  Weight: 90.9 kg

DRUGS (8)
  1. PROBIOTICS [Concomitant]
     Active Substance: PROBIOTICS NOS
  2. MAGNESIUM [Concomitant]
     Active Substance: MAGNESIUM
  3. POTASSIUM 99 [Concomitant]
  4. FISH OIL [Concomitant]
     Active Substance: FISH OIL
  5. MAVYRET [Suspect]
     Active Substance: GLECAPREVIR\PIBRENTASVIR
     Indication: HEPATITIS C VIRUS TEST POSITIVE
     Dosage: ?          QUANTITY:3 TABLET(S);?
     Route: 048
     Dates: start: 20191202
  6. CELEBREX [Concomitant]
     Active Substance: CELECOXIB
  7. B12, MULTIVITAMIN, [Concomitant]
  8. NEXIUM [Concomitant]
     Active Substance: ESOMEPRAZOLE MAGNESIUM

REACTIONS (2)
  - Limb discomfort [None]
  - Hypoaesthesia [None]

NARRATIVE: CASE EVENT DATE: 20191213
